FAERS Safety Report 22914526 (Version 5)
Quarter: 2024Q2

REPORT INFORMATION
  Report Type: Spontaneous
  Country: CH (occurrence: CH)
  Receive Date: 20230907
  Receipt Date: 20240425
  Transmission Date: 20240716
  Serious: Yes (Congenital Anomaly)
  Sender: FDA-Public Use
  Company Number: CH-ABBVIE-5394989

PATIENT
  Sex: Female
  Weight: 7 kg

DRUGS (1)
  1. SEVOFLURANE [Suspect]
     Active Substance: SEVOFLURANE
     Indication: Maternal exposure timing unspecified
     Route: 064

REACTIONS (2)
  - Dacryocystocoele [Unknown]
  - Foetal exposure during pregnancy [Unknown]
